FAERS Safety Report 8957067 (Version 2)
Quarter: 2013Q1

REPORT INFORMATION
  Report Type: Spontaneous
  Country: US (occurrence: US)
  Receive Date: 20121210
  Receipt Date: 20130308
  Transmission Date: 20140127
  Serious: No
  Sender: FDA-Public Use
  Company Number: US-ASTELLAS-2012US011944

PATIENT
  Sex: Male

DRUGS (10)
  1. XTANDI [Suspect]
     Indication: PROSTATE CANCER
     Dosage: 160 MG, UID/QD
     Route: 048
     Dates: start: 20121101, end: 20121120
  2. OMEPRAZOLE [Concomitant]
     Indication: GASTRIC PH DECREASED
     Dosage: UNK
     Route: 065
  3. KLOR-CON [Concomitant]
     Indication: BLOOD POTASSIUM
     Dosage: UNK
     Route: 065
  4. K-PHOS [Concomitant]
     Indication: BLOOD POTASSIUM
     Dosage: UNK
     Route: 065
  5. FUROSEMIDE [Concomitant]
     Indication: FLUID RETENTION
     Dosage: UNK
     Route: 065
  6. CARVEDILOL [Concomitant]
     Indication: HYPERTENSION
     Dosage: UNK
     Route: 065
  7. LISINOPRIL [Concomitant]
     Indication: BLOOD PRESSURE
     Dosage: UNK
     Route: 065
  8. JANUVIA [Concomitant]
     Indication: BLOOD GLUCOSE ABNORMAL
     Dosage: UNK
     Route: 065
     Dates: start: 20121003
  9. VITAMIN D /00107901/ [Concomitant]
     Indication: PRODUCT USED FOR UNKNOWN INDICATION
     Dosage: UNK
     Route: 065
  10. LECITHIN [Concomitant]
     Indication: PRODUCT USED FOR UNKNOWN INDICATION
     Dosage: UNK
     Route: 065

REACTIONS (3)
  - Decreased appetite [Recovering/Resolving]
  - Fatigue [Recovering/Resolving]
  - Asthenia [Unknown]
